FAERS Safety Report 6821373-6 (Version None)
Quarter: 2010Q3

REPORT INFORMATION
  Report Type: 
  Country: None (occurrence: None)
  Receive Date: 20100707
  Receipt Date: 20081208
  Transmission Date: 20110219
  Serious: No
  Sender: FDA-Public Use
  Company Number: US-PFIZER INC-2008150727

PATIENT
  Age: 42 Year
  Sex: Female

DRUGS (4)
  1. ZOLOFT [Suspect]
     Dosage: UNK
  2. LUNESTA [Suspect]
     Indication: INSOMNIA
     Dosage: 3 MG, UNK, HS
     Route: 048
     Dates: start: 20081101
  3. AMBIEN [Concomitant]
  4. XANAX [Concomitant]

REACTIONS (4)
  - AMNESIA [None]
  - DRUG INEFFECTIVE [None]
  - DYSGEUSIA [None]
  - FOOD CRAVING [None]
